FAERS Safety Report 17551419 (Version 1)
Quarter: 2020Q1

REPORT INFORMATION
  Report Type: Spontaneous
  Country: US (occurrence: US)
  Receive Date: 20200317
  Receipt Date: 20200317
  Transmission Date: 20200409
  Serious: Yes (Hospitalization)
  Sender: FDA-Public Use
  Company Number: None

PATIENT
  Sex: Male

DRUGS (5)
  1. ENOXAPARIN [Concomitant]
     Active Substance: ENOXAPARIN
  2. PREDNISONE. [Concomitant]
     Active Substance: PREDNISONE
  3. LORAZEPAM. [Concomitant]
     Active Substance: LORAZEPAM
  4. INLYTA [Suspect]
     Active Substance: AXITINIB
     Indication: RENAL CANCER
     Route: 048
     Dates: start: 20190824
  5. FLUDROCORT [Concomitant]

REACTIONS (1)
  - Therapy cessation [None]
